FAERS Safety Report 17467739 (Version 1)
Quarter: 2020Q1

REPORT INFORMATION
  Report Type: Spontaneous
  Country: US (occurrence: US)
  Receive Date: 20200227
  Receipt Date: 20200227
  Transmission Date: 20200409
  Serious: Yes (Other)
  Sender: FDA-Public Use
  Company Number: US-PFIZER INC-2020085621

PATIENT
  Age: 61 Year
  Sex: Male
  Weight: 101.6 kg

DRUGS (3)
  1. PRISTIQ EXTENDED-RELEASE [Suspect]
     Active Substance: DESVENLAFAXINE SUCCINATE
     Dosage: 100 MG, 1X/DAY
     Route: 048
  2. LOSARTAN. [Concomitant]
     Active Substance: LOSARTAN
     Indication: BLOOD PRESSURE ABNORMAL
     Dosage: 50 MG, 2X/DAY
     Route: 048
  3. LYRICA [Suspect]
     Active Substance: PREGABALIN
     Indication: HEADACHE
     Dosage: UNK
     Dates: start: 202001

REACTIONS (6)
  - Dizziness [Unknown]
  - Fall [Unknown]
  - Dehydration [Unknown]
  - Blood pressure orthostatic decreased [Unknown]
  - Crohn^s disease [Unknown]
  - Muscular weakness [Unknown]
